FAERS Safety Report 12624168 (Version 1)
Quarter: 2016Q3

REPORT INFORMATION
  Report Type: Spontaneous
  Country: FR (occurrence: FR)
  Receive Date: 20160805
  Receipt Date: 20160805
  Transmission Date: 20161109
  Serious: Yes (Hospitalization)
  Sender: FDA-Public Use
  Company Number: FR-ROCHE-1808091

PATIENT
  Age: 8 Year
  Sex: Female
  Weight: 20 kg

DRUGS (34)
  1. ERYTHROCINE [Concomitant]
     Active Substance: ERYTHROMYCIN
     Route: 048
     Dates: start: 20140526, end: 20140611
  2. MOPRAL [Concomitant]
     Active Substance: OMEPRAZOLE SODIUM
     Route: 048
     Dates: start: 20140526, end: 20140611
  3. VITAMINE A [Concomitant]
     Active Substance: RETINOL
  4. BACTRIM [Concomitant]
     Active Substance: SULFAMETHOXAZOLE\TRIMETHOPRIM
     Dosage: 400/80
     Route: 065
  5. UVEDOSE [Concomitant]
     Active Substance: CHOLECALCIFEROL
     Dosage: 1 AMPULE
     Route: 065
  6. ISOPHANE INSULIN [Concomitant]
     Active Substance: INSULIN NOS
     Dosage: 100 IU/ML
     Route: 065
  7. TOBI NEBULIZER [Concomitant]
  8. CREON [Concomitant]
     Active Substance: PANCRELIPASE AMYLASE\PANCRELIPASE LIPASE\PANCRELIPASE PROTEASE
     Dosage: BEFORE MEALS.
     Route: 048
     Dates: start: 20140526, end: 20140611
  9. LASILIX [Concomitant]
     Active Substance: FUROSEMIDE
     Route: 048
     Dates: start: 20140526, end: 20140611
  10. MIDAZOLAM [Concomitant]
     Active Substance: MIDAZOLAM\MIDAZOLAM HYDROCHLORIDE
     Route: 065
     Dates: start: 20140526, end: 20140526
  11. CORTANCYL [Concomitant]
     Active Substance: PREDNISONE
     Route: 065
  12. OMEPRAZOLE. [Concomitant]
     Active Substance: OMEPRAZOLE
     Route: 065
  13. PEPTAMEN [Concomitant]
     Dosage: EVERY NIGHT.
     Route: 065
  14. TACROLIMUS. [Suspect]
     Active Substance: TACROLIMUS
     Route: 048
     Dates: start: 20140404
  15. TACROLIMUS. [Suspect]
     Active Substance: TACROLIMUS
     Route: 048
  16. BETA-CAROTENE FORTE [Concomitant]
     Route: 065
  17. FORTUM [Concomitant]
     Active Substance: CEFTAZIDIME
     Route: 048
     Dates: start: 20140526, end: 20140611
  18. SODIUM CHLORIDE. [Concomitant]
     Active Substance: SODIUM CHLORIDE
     Dosage: 5 ML MORNING AND EVENING
     Route: 065
  19. URSOLVAN [Concomitant]
     Active Substance: URSODIOL
     Route: 065
  20. URSODESOXYCHOLIC ACID [Concomitant]
     Active Substance: URSODIOL
     Route: 048
     Dates: start: 20140526, end: 20140611
  21. EUROBIOL [Concomitant]
     Dosage: 25000 IU AT 10:00 PM AND 12.500 IU AT 00:00 AM
     Route: 065
  22. VITAMIN K1 [Concomitant]
     Active Substance: PHYTONADIONE
     Route: 065
  23. CELLCEPT [Suspect]
     Active Substance: MYCOPHENOLATE MOFETIL\MYCOPHENOLATE MOFETIL HYDROCHLORIDE
     Indication: PROPHYLAXIS AGAINST TRANSPLANT REJECTION
     Route: 048
     Dates: start: 20131002
  24. VITAMIN E [Concomitant]
     Active Substance: .ALPHA.-TOCOPHEROL
  25. CIFLOX (FRANCE) [Concomitant]
     Active Substance: CIPROFLOXACIN
     Route: 065
  26. CELLCEPT [Suspect]
     Active Substance: MYCOPHENOLATE MOFETIL\MYCOPHENOLATE MOFETIL HYDROCHLORIDE
     Route: 048
     Dates: start: 20140404
  27. CELLCEPT [Suspect]
     Active Substance: MYCOPHENOLATE MOFETIL\MYCOPHENOLATE MOFETIL HYDROCHLORIDE
     Route: 048
     Dates: start: 20140611
  28. TACROLIMUS. [Suspect]
     Active Substance: TACROLIMUS
     Dosage: 1.8 UG/L
     Route: 048
     Dates: start: 20140611
  29. FORTUM [Concomitant]
     Active Substance: CEFTAZIDIME
     Route: 042
     Dates: start: 20140526, end: 20140611
  30. VITAMIN C [Concomitant]
     Active Substance: ASCORBIC ACID
  31. TACROLIMUS. [Suspect]
     Active Substance: TACROLIMUS
     Route: 048
     Dates: start: 20140611
  32. NOVOMIX [Concomitant]
     Active Substance: INSULIN ASPART
     Dosage: FLEX PEN (100 U/ML)
     Route: 042
     Dates: start: 20140526, end: 20140603
  33. UVESTEROL [Concomitant]
     Active Substance: ASCORBIC ACID\ERGOCALCIFEROL\RETINOL\TOCOPHEROL
     Route: 055
     Dates: start: 20140527, end: 20140611
  34. TACROLIMUS. [Suspect]
     Active Substance: TACROLIMUS
     Indication: PROPHYLAXIS AGAINST TRANSPLANT REJECTION
     Route: 048
     Dates: start: 20131002

REACTIONS (2)
  - Cytomegalovirus infection [Recovered/Resolved]
  - Immunosuppressant drug level increased [Recovered/Resolved]

NARRATIVE: CASE EVENT DATE: 20140526
